FAERS Safety Report 7632742-9 (Version None)
Quarter: 2011Q3

REPORT INFORMATION
  Report Type: 
  Country: None (occurrence: None)
  Receive Date: 20110725
  Receipt Date: 20101217
  Transmission Date: 20111222
  Serious: No
  Sender: FDA-Public Use
  Company Number: US-BRISTOL-MYERS SQUIBB COMPANY-15449101

PATIENT
  Age: 78 Year
  Sex: Male

DRUGS (3)
  1. LISINOPRIL [Concomitant]
  2. WARFARIN SODIUM [Suspect]
     Dosage: VARYING DOSE:1.5MG TO 2.5MG
  3. LANOXIN [Concomitant]

REACTIONS (1)
  - INTERNATIONAL NORMALISED RATIO FLUCTUATION [None]
